FAERS Safety Report 14190380 (Version 5)
Quarter: 2017Q4

REPORT INFORMATION
  Report Type: Spontaneous
  Country: GB (occurrence: GB)
  Receive Date: 20171115
  Receipt Date: 20171120
  Transmission Date: 20180321
  Serious: Yes (Hospitalization, Disabling)
  Sender: FDA-Public Use
  Company Number: GB-CONCORDIA PHARMACEUTICALS INC.-GSH201604-001745

PATIENT
  Age: 45 Year
  Sex: Female

DRUGS (7)
  1. LEVOTHYROXINE. [Concomitant]
     Active Substance: LEVOTHYROXINE
  2. PREDNISOLONE. [Suspect]
     Active Substance: PREDNISOLONE
     Dosage: 60MG OD INITIALLY ON A REDUCING DOSE OF 10MG WEEKLY - LAST DOSE TAKEN ON 22/03/16 WAS 40MG OD.
     Route: 048
     Dates: start: 20160310, end: 20160317
  3. AMITRIPTYLINE [Concomitant]
     Active Substance: AMITRIPTYLINE
  4. OMEPRAZOLE. [Concomitant]
     Active Substance: OMEPRAZOLE
  5. PREDNISOLONE. [Suspect]
     Active Substance: PREDNISOLONE
     Dosage: 60MG OD INITIALLY ON A REDUCING DOSE OF 10MG WEEKLY - LAST DOSE TAKEN ON 22/03/16 WAS 40MG OD.
     Route: 048
     Dates: start: 20160317, end: 20160322
  6. NIFEDIPINE. [Concomitant]
     Active Substance: NIFEDIPINE
  7. PREDNISOLONE. [Suspect]
     Active Substance: PREDNISOLONE
     Dosage: 60MG OD INITIALLY ON A REDUCING DOSE OF 10MG WEEKLY - LAST DOSE TAKEN ON 22/03/16 WAS 40MG OD.
     Route: 048
     Dates: start: 20160303, end: 20160310

REACTIONS (3)
  - Delusion [Recovered/Resolved]
  - Acute psychosis [Recovered/Resolved]
  - Hallucination, visual [Recovered/Resolved]

NARRATIVE: CASE EVENT DATE: 20160321
